FAERS Safety Report 9774571 (Version 2)
Quarter: 2014Q1

REPORT INFORMATION
  Report Type: Spontaneous
  Country: US (occurrence: US)
  Receive Date: 20131220
  Receipt Date: 20140106
  Transmission Date: 20141002
  Serious: Yes (Other)
  Sender: FDA-Public Use
  Company Number: US-BAYER-2013-155579

PATIENT
  Sex: Female

DRUGS (1)
  1. YAZ [Suspect]
     Route: 048

REACTIONS (6)
  - Genital haemorrhage [None]
  - Abdominal pain lower [None]
  - Metrorrhagia [None]
  - Vaginal haemorrhage [None]
  - Nausea [None]
  - Vomiting [None]
